FAERS Safety Report 5247057-6 (Version None)
Quarter: 2007Q1

REPORT INFORMATION
  Report Type: 
  Country: None (occurrence: None)
  Receive Date: 20070220
  Receipt Date: 20070206
  Transmission Date: 20070707
  Serious: Yes (Other)
  Sender: FDA-Public Use
  Company Number: 2007S1001118

PATIENT
  Age: 22 Year
  Sex: Female

DRUGS (3)
  1. AMITRIPTYLINE HCL [Suspect]
     Indication: HEADACHE
     Dosage: 150 MG; DAILY; ORAL
     Route: 048
     Dates: start: 20020101
  2. AMITRIPTYLINE HCL [Suspect]
     Indication: INSOMNIA
     Dosage: 150 MG; DAILY; ORAL
     Route: 048
     Dates: start: 20020101
  3. AMITRIPTYLINE HCL [Suspect]
     Indication: MOOD SWINGS
     Dosage: 150 MG; DAILY; ORAL
     Route: 048
     Dates: start: 20020101

REACTIONS (8)
  - BLOOD GLUCOSE INCREASED [None]
  - BLOOD UREA DECREASED [None]
  - CONVULSION [None]
  - FATIGUE [None]
  - INCORRECT DRUG DOSAGE FORM ADMINISTERED [None]
  - LOSS OF CONSCIOUSNESS [None]
  - MYDRIASIS [None]
  - PARAESTHESIA [None]
